FAERS Safety Report 17229352 (Version 1)
Quarter: 2020Q1

REPORT INFORMATION
  Report Type: Spontaneous
  Country: US (occurrence: US)
  Receive Date: 20200103
  Receipt Date: 20200103
  Transmission Date: 20200409
  Serious: No
  Sender: FDA-Public Use
  Company Number: US-BEH-2019110671

PATIENT
  Age: 14 Year
  Sex: Male

DRUGS (2)
  1. IDELVION [Suspect]
     Active Substance: COAGULATION FACTOR IX RECOMBINANT HUMAN
     Indication: FACTOR IX DEFICIENCY
     Dosage: 3000 INTERNATIONAL UNIT, QW
     Route: 042
     Dates: start: 20190905
  2. IDELVION [Suspect]
     Active Substance: COAGULATION FACTOR IX RECOMBINANT HUMAN
     Indication: FACTOR IX DEFICIENCY
     Dosage: 3000 INTERNATIONAL UNIT, QW
     Route: 042
     Dates: start: 20190905

REACTIONS (4)
  - Treatment noncompliance [Unknown]
  - Product dose omission [Unknown]
  - Malaise [Unknown]
  - No adverse event [Unknown]
